FAERS Safety Report 5273245-9 (Version None)
Quarter: 2007Q1

REPORT INFORMATION
  Report Type: 
  Country: None (occurrence: None)
  Receive Date: 20070319
  Receipt Date: 20061228
  Transmission Date: 20070707
  Serious: Yes (Other)
  Sender: FDA-Public Use
  Company Number: AE2006-CMDP-001

PATIENT
  Age: 58 Year
  Sex: Female

DRUGS (1)
  1. TECNETIUM TC-99M MEDRONATE KIT CIS MDD [Suspect]
     Dates: start: 20061221

REACTIONS (2)
  - HYPERHIDROSIS [None]
  - PALLOR [None]
